FAERS Safety Report 10569787 (Version 1)
Quarter: 2014Q4

REPORT INFORMATION
  Report Type: Spontaneous
  Country: SE (occurrence: SE)
  Receive Date: 20141107
  Receipt Date: 20141107
  Transmission Date: 20150529
  Serious: Yes (Death, Life-Threatening, Hospitalization)
  Sender: FDA-Public Use
  Company Number: SE-ASTRAZENECA-2014SE82716

PATIENT
  Age: 76 Year
  Sex: Male

DRUGS (6)
  1. BRILIQUE [Suspect]
     Active Substance: TICAGRELOR
     Indication: THROMBOSIS PROPHYLAXIS
     Route: 048
     Dates: start: 20141002, end: 20141002
  2. HEPARIN [Concomitant]
     Active Substance: HEPARIN SODIUM
     Dates: start: 20141002, end: 20141002
  3. FURIX [Concomitant]
     Active Substance: FUROSEMIDE
     Dates: start: 20141002, end: 20141002
  4. TROMBYL [Concomitant]
     Active Substance: ASPIRIN
     Dates: start: 20141002, end: 20141002
  5. MORPHINE [Concomitant]
     Active Substance: MORPHINE
     Dates: start: 20141002, end: 20141002
  6. GLYCERYL TRINITRATE [Concomitant]
     Active Substance: NITROGLYCERIN
     Dates: start: 20141002, end: 20141002

REACTIONS (4)
  - Multi-organ failure [Unknown]
  - Coagulopathy [Fatal]
  - Cardiac arrest [Unknown]
  - Cardiac tamponade [Unknown]

NARRATIVE: CASE EVENT DATE: 20141002
